FAERS Safety Report 9645264 (Version 1)
Quarter: 2013Q4

REPORT INFORMATION
  Report Type: Spontaneous
  Country: US (occurrence: None)
  Receive Date: 20131023
  Receipt Date: 20131023
  Transmission Date: 20140711
  Serious: Yes (Other)
  Sender: FDA-Public Use
  Company Number: None

PATIENT
  Age: 35 Year
  Sex: Female
  Weight: 72.58 kg

DRUGS (2)
  1. MONISTAT [Suspect]
     Indication: VULVOVAGINAL PRURITUS
     Dosage: 1 OVULE INSERT  .32 OZ TUBE OF CREAM
     Route: 067
     Dates: start: 20131015, end: 20131015
  2. WOMEN^S 1 A DAY VITAMINS [Concomitant]

REACTIONS (4)
  - Burning sensation [None]
  - Swelling [None]
  - Pain [None]
  - Gait disturbance [None]
